FAERS Safety Report 11703706 (Version 1)
Quarter: 2015Q4

REPORT INFORMATION
  Report Type: Other
  Country: GB (occurrence: GB)
  Receive Date: 20151106
  Receipt Date: 20151106
  Transmission Date: 20160304
  Serious: Yes (Disabling, Other)
  Sender: FDA-Public Use
  Company Number: GB-SUN PHARMACEUTICAL INDUSTRIES LTD-2015SUN02163

PATIENT
  Age: 57 Year
  Sex: Female
  Weight: 78.46 kg

DRUGS (4)
  1. GLICLAZIDE [Concomitant]
     Active Substance: GLICLAZIDE
     Dosage: 1 DF, BID
  2. GLUCOPHAGE XR [Concomitant]
     Active Substance: METFORMIN HYDROCHLORIDE
     Dosage: 1000 MG, BID
  3. VENLAFAXINE [Suspect]
     Active Substance: VENLAFAXINE HYDROCHLORIDE
     Indication: DEPRESSION SUICIDAL
     Dosage: 35 MG, BID
     Route: 048
     Dates: start: 20150928, end: 20151011
  4. MIRTAZAPINE. [Concomitant]
     Active Substance: MIRTAZAPINE
     Dosage: 15 MG, QD; STOPPED TAKING THESE 2 WEEKS BEFORE

REACTIONS (7)
  - Tremor [Not Recovered/Not Resolved]
  - Rash pruritic [Recovering/Resolving]
  - Suicidal ideation [Not Recovered/Not Resolved]
  - Panic disorder with agoraphobia [Not Recovered/Not Resolved]
  - Crying [Recovering/Resolving]
  - Condition aggravated [Unknown]
  - Hallucination, visual [Not Recovered/Not Resolved]

NARRATIVE: CASE EVENT DATE: 20150930
